FAERS Safety Report 4808159-9 (Version None)
Quarter: 2005Q4

REPORT INFORMATION
  Report Type: 
  Country: None (occurrence: None)
  Receive Date: 20051020
  Receipt Date: 20051006
  Transmission Date: 20060501
  Serious: Yes (Other)
  Sender: FDA-Public Use
  Company Number: DE-2005-015147

PATIENT
  Age: 65 Year
  Sex: Female
  Weight: 75 kg

DRUGS (1)
  1. ULTRAVIST 300 [Suspect]
     Indication: COMPUTERISED TOMOGRAM ABDOMEN
     Dosage: 120 ML, 1 DOSE INTRAVENOUS
     Route: 042
     Dates: start: 20050713, end: 20050713

REACTIONS (5)
  - BLOOD PRESSURE INCREASED [None]
  - CONFUSIONAL STATE [None]
  - PALLOR [None]
  - SHOCK [None]
  - SOMNOLENCE [None]
